FAERS Safety Report 9293698 (Version 2)
Quarter: 2013Q2

REPORT INFORMATION
  Report Type: Report from Study
  Country: DE (occurrence: DE)
  Receive Date: 20130516
  Receipt Date: 20130628
  Transmission Date: 20140414
  Serious: Yes (Hospitalization)
  Sender: FDA-Public Use
  Company Number: DE-UCBSA-072893

PATIENT
  Age: 79 Year
  Sex: Male
  Weight: 65 kg

DRUGS (1)
  1. ROTIGOTINE [Suspect]
     Indication: PARKINSON^S DISEASE
     Route: 062
     Dates: start: 20121206

REACTIONS (3)
  - Parkinson^s disease [Recovered/Resolved]
  - Drug delivery device implantation [Recovered/Resolved]
  - Drug therapy enhancement [Recovered/Resolved]
